FAERS Safety Report 7971715-3 (Version None)
Quarter: 2011Q4

REPORT INFORMATION
  Report Type: 
  Country: None (occurrence: None)
  Receive Date: 20111212
  Receipt Date: 20111129
  Transmission Date: 20120403
  Serious: Yes (Hospitalization)
  Sender: FDA-Public Use
  Company Number: US-ACTELION-A-NJ2011-56817

PATIENT

DRUGS (6)
  1. ASPIRIN [Concomitant]
  2. TRACLEER [Suspect]
     Indication: PULMONARY ARTERIAL HYPERTENSION
     Dosage: UNK
     Route: 048
     Dates: start: 20100429
  3. EPOPROSTENOL SODIUM [Suspect]
     Indication: PULMONARY ARTERIAL HYPERTENSION
     Dosage: 28 NG/KG, PER MIN
     Route: 041
     Dates: start: 20110101
  4. OXYGEN [Concomitant]
  5. SILDENAFIL [Concomitant]
  6. EPOPROSTENOL SODIUM [Suspect]
     Dosage: 21 NG/KG, PER MIN
     Route: 041
     Dates: start: 20101214, end: 20110101

REACTIONS (6)
  - IMMOBILE [None]
  - FATIGUE [None]
  - DEVICE INFUSION ISSUE [None]
  - ASTHENIA [None]
  - TRANSIENT ISCHAEMIC ATTACK [None]
  - DYSPNOEA [None]
